FAERS Safety Report 13672561 (Version 1)
Quarter: 2017Q2

REPORT INFORMATION
  Report Type: Spontaneous
  Country: FR (occurrence: FR)
  Receive Date: 20170621
  Receipt Date: 20170621
  Transmission Date: 20170830
  Serious: Yes (Other)
  Sender: FDA-Public Use
  Company Number: FR-PFIZER INC-2017261720

PATIENT
  Age: 86 Year
  Sex: Female

DRUGS (15)
  1. VANCOMYCIN HCL [Suspect]
     Active Substance: VANCOMYCIN HYDROCHLORIDE
     Indication: DEVICE RELATED INFECTION
     Dosage: 2 G, 1X/DAY
     Route: 042
     Dates: start: 20170512, end: 20170519
  2. INVANZ [Suspect]
     Active Substance: ERTAPENEM SODIUM
     Indication: DEVICE RELATED INFECTION
     Dosage: 2 G, 1X/DAY
     Route: 042
     Dates: start: 20170516, end: 20170530
  3. ACUPAN [Concomitant]
     Active Substance: NEFOPAM HYDROCHLORIDE
  4. MOPRAL /00661201/ [Concomitant]
     Active Substance: OMEPRAZOLE SODIUM
  5. LEDERFOLINE [Suspect]
     Active Substance: LEUCOVORIN CALCIUM
     Dosage: 5 MG, 1X/DAY
     Route: 048
     Dates: start: 20170519
  6. RIFADINE /00146901/ [Suspect]
     Active Substance: RIFAMPIN
     Dosage: 900 MG, 1X/DAY
     Dates: start: 20170517
  7. SERETIDE [Concomitant]
     Active Substance: FLUTICASONE PROPIONATE\SALMETEROL XINAFOATE
  8. ZOPICLONE [Concomitant]
     Active Substance: ZOPICLONE
  9. TARDYFERON B9 /00023601/ [Suspect]
     Active Substance: FERROUS SULFATE\FOLIC ACID
     Dosage: 1 DF, 2X/DAY
     Route: 048
     Dates: start: 20170425
  10. PAROXETINE HYDROCHLORIDE. [Concomitant]
     Active Substance: PAROXETINE HYDROCHLORIDE
  11. RIFADINE /00146901/ [Suspect]
     Active Substance: RIFAMPIN
     Indication: DEVICE RELATED INFECTION
     Dosage: 600 MG, 2X/DAY
     Route: 048
     Dates: start: 20170514, end: 20170516
  12. BACTRIM [Suspect]
     Active Substance: SULFAMETHOXAZOLE\TRIMETHOPRIM
     Indication: DEVICE RELATED INFECTION
     Dosage: 1 DF, 3X/DAY
     Route: 048
     Dates: start: 20170519
  13. MONTELUKAST SODIUM. [Concomitant]
     Active Substance: MONTELUKAST SODIUM
  14. PARACETAMOL [Concomitant]
     Active Substance: ACETAMINOPHEN
  15. ZOLPIDEM TARTRATE. [Concomitant]
     Active Substance: ZOLPIDEM TARTRATE

REACTIONS (2)
  - Hallucination [Recovered/Resolved]
  - Confusional state [Recovered/Resolved]

NARRATIVE: CASE EVENT DATE: 20170522
